FAERS Safety Report 24713164 (Version 2)
Quarter: 2025Q2

REPORT INFORMATION
  Report Type: Report from Study
  Country: CN (occurrence: CN)
  Receive Date: 20241209
  Receipt Date: 20250408
  Transmission Date: 20250717
  Serious: Yes (Other)
  Sender: ALEXION PHARMACEUTICALS
  Company Number: CN-ASTRAZENECA-202412GLO001002CN

PATIENT

DRUGS (26)
  1. ECULIZUMAB [Suspect]
     Active Substance: ECULIZUMAB
     Route: 065
  2. ECULIZUMAB [Suspect]
     Active Substance: ECULIZUMAB
     Route: 065
  3. ECULIZUMAB [Suspect]
     Active Substance: ECULIZUMAB
     Route: 065
  4. ECULIZUMAB [Suspect]
     Active Substance: ECULIZUMAB
     Route: 065
  5. ECULIZUMAB [Suspect]
     Active Substance: ECULIZUMAB
     Route: 065
  6. ECULIZUMAB [Suspect]
     Active Substance: ECULIZUMAB
     Route: 065
  7. ECULIZUMAB [Suspect]
     Active Substance: ECULIZUMAB
     Route: 065
  8. ECULIZUMAB [Suspect]
     Active Substance: ECULIZUMAB
     Route: 065
  9. ECULIZUMAB [Suspect]
     Active Substance: ECULIZUMAB
     Route: 065
  10. ECULIZUMAB [Suspect]
     Active Substance: ECULIZUMAB
     Route: 065
  11. ECULIZUMAB [Suspect]
     Active Substance: ECULIZUMAB
     Route: 065
  12. ECULIZUMAB [Suspect]
     Active Substance: ECULIZUMAB
     Route: 065
  13. ECULIZUMAB [Suspect]
     Active Substance: ECULIZUMAB
     Route: 065
  14. ECULIZUMAB [Suspect]
     Active Substance: ECULIZUMAB
     Route: 065
  15. ECULIZUMAB [Suspect]
     Active Substance: ECULIZUMAB
     Route: 065
  16. ECULIZUMAB [Suspect]
     Active Substance: ECULIZUMAB
     Route: 065
  17. ECULIZUMAB [Suspect]
     Active Substance: ECULIZUMAB
     Route: 065
  18. ECULIZUMAB [Suspect]
     Active Substance: ECULIZUMAB
     Route: 065
  19. ECULIZUMAB [Suspect]
     Active Substance: ECULIZUMAB
     Route: 065
  20. ECULIZUMAB [Suspect]
     Active Substance: ECULIZUMAB
     Route: 065
  21. ECULIZUMAB [Suspect]
     Active Substance: ECULIZUMAB
     Route: 065
  22. ECULIZUMAB [Suspect]
     Active Substance: ECULIZUMAB
     Route: 065
  23. ECULIZUMAB [Suspect]
     Active Substance: ECULIZUMAB
     Route: 065
  24. ECULIZUMAB [Suspect]
     Active Substance: ECULIZUMAB
     Route: 065
  25. STANOZOLOL [Concomitant]
     Active Substance: STANOZOLOL
     Indication: Paroxysmal nocturnal haemoglobinuria
     Route: 065
  26. PREDNISONE ACETATE [Concomitant]
     Active Substance: PREDNISONE ACETATE
     Indication: Paroxysmal nocturnal haemoglobinuria
     Route: 065

REACTIONS (1)
  - Cholestasis [Not Recovered/Not Resolved]
